FAERS Safety Report 4720945-2 (Version None)
Quarter: 2005Q3

REPORT INFORMATION
  Report Type: 
  Country: None (occurrence: None)
  Receive Date: 20050720
  Receipt Date: 20050704
  Transmission Date: 20060218
  Serious: Yes (Death)
  Sender: FDA-Public Use
  Company Number: 8011089

PATIENT
  Age: 80 Year
  Sex: Male

DRUGS (2)
  1. THEOPHYLLINE [Suspect]
  2. CIMETIDINE [Suspect]

REACTIONS (1)
  - DRUG INTERACTION [None]
